FAERS Safety Report 5953923-6 (Version None)
Quarter: 2008Q4

REPORT INFORMATION
  Report Type: 
  Country: None (occurrence: None)
  Receive Date: 20081114
  Receipt Date: 20081105
  Transmission Date: 20090506
  Serious: Yes (Other)
  Sender: FDA-Public Use
  Company Number: US-PFIZER INC-2008085625

PATIENT
  Sex: Female

DRUGS (3)
  1. AROMASIN [Suspect]
     Route: 048
  2. ASPIRIN [Concomitant]
  3. BETA BLOCKING AGENTS [Concomitant]

REACTIONS (1)
  - ISCHAEMIC STROKE [None]
